FAERS Safety Report 4846785-1 (Version None)
Quarter: 2005Q4

REPORT INFORMATION
  Report Type: 
  Country: None (occurrence: None)
  Receive Date: 20051201
  Receipt Date: 20051122
  Transmission Date: 20060501
  Serious: Yes (Other)
  Sender: FDA-Public Use
  Company Number: 2005153831

PATIENT
  Sex: Female
  Weight: 72.5755 kg

DRUGS (4)
  1. NORPACE CR [Suspect]
     Indication: CARDIAC DISORDER
     Dosage: 400 MG (200 MG, TWICE DAILY, INTERVAL: EVERY DAY), ORAL
     Route: 048
     Dates: start: 19900101
  2. ACTOS [Concomitant]
  3. ALLOPURINOL [Concomitant]
  4. METFORMIN HCL [Concomitant]

REACTIONS (7)
  - ARTHRITIS [None]
  - BLOOD CHOLESTEROL INCREASED [None]
  - BODY HEIGHT DECREASED [None]
  - HEART RATE IRREGULAR [None]
  - PHARMACEUTICAL PRODUCT COMPLAINT [None]
  - RENAL DISORDER [None]
  - TACHYCARDIA [None]
